FAERS Safety Report 6197690-2 (Version None)
Quarter: 2009Q2

REPORT INFORMATION
  Report Type: 
  Country: None (occurrence: None)
  Receive Date: 20090514
  Receipt Date: 20081124
  Transmission Date: 20091009
  Serious: Yes (Other)
  Sender: FDA-Public Use
  Company Number: AE-1108-365

PATIENT
  Age: 54 Year
  Sex: Male

DRUGS (1)
  1. LIDODERM [Suspect]
     Dosage: 1 PATCH A DAY; TWICE

REACTIONS (2)
  - ACCIDENTAL EXPOSURE [None]
  - DIZZINESS [None]
